FAERS Safety Report 9876568 (Version 2)
Quarter: 2014Q1

REPORT INFORMATION
  Report Type: Other
  Country: US (occurrence: US)
  Receive Date: 20140206
  Receipt Date: 20140206
  Transmission Date: 20141002
  Serious: No
  Sender: FDA-Public Use
  Company Number: US-ACORDA-ACO_38191_2013

PATIENT
  Age: 49 Year
  Sex: Female
  Weight: 58.96 kg

DRUGS (7)
  1. AMPYRA [Suspect]
     Indication: GAIT DISTURBANCE
     Dosage: 10 MG, BID
     Route: 048
     Dates: start: 201305, end: 20130824
  2. AMPYRA [Suspect]
     Dosage: 10 MG, Q 12 HRS
     Route: 048
     Dates: start: 20130827
  3. TYSABRI [Concomitant]
     Indication: PRODUCT USED FOR UNKNOWN INDICATION
     Dosage: 300 UNK, UNK
     Route: 065
  4. BACLOFEN [Concomitant]
     Indication: PRODUCT USED FOR UNKNOWN INDICATION
     Dosage: 10 MG, UNK
     Route: 065
  5. EFFEXOR [Concomitant]
     Indication: PRODUCT USED FOR UNKNOWN INDICATION
     Dosage: 100 MG, UNK
     Route: 065
  6. VITAMIN D [Concomitant]
     Indication: PRODUCT USED FOR UNKNOWN INDICATION
     Dosage: 1000 IU, UNK
  7. ASPIRIN [Concomitant]
     Indication: PRODUCT USED FOR UNKNOWN INDICATION
     Dosage: 81 MG, UNK

REACTIONS (12)
  - Depressed level of consciousness [Recovering/Resolving]
  - Muscular weakness [Not Recovered/Not Resolved]
  - Muscle spasms [Not Recovered/Not Resolved]
  - Gait disturbance [Not Recovered/Not Resolved]
  - Pain [Not Recovered/Not Resolved]
  - Fatigue [Recovering/Resolving]
  - Pharyngeal disorder [Unknown]
  - Urinary tract infection [Recovered/Resolved]
  - Back pain [Recovering/Resolving]
  - Drug ineffective [Unknown]
  - Asthenia [Not Recovered/Not Resolved]
  - Insomnia [Unknown]
